FAERS Safety Report 4501687-5 (Version None)
Quarter: 2004Q4

REPORT INFORMATION
  Report Type: 
  Country: None (occurrence: None)
  Receive Date: 20041115
  Receipt Date: 20041115
  Transmission Date: 20050328
  Serious: Yes (Other)
  Sender: FDA-Public Use
  Company Number: None

PATIENT
  Sex: Male

DRUGS (1)
  1. MYSOLINE [Suspect]
     Indication: TREMOR
     Dosage: TAKE 3 TABS IN THE MORING AND 5 TABS AT BEDTIME

REACTIONS (2)
  - PHARMACEUTICAL PRODUCT COMPLAINT [None]
  - TREMOR [None]
